FAERS Safety Report 22352626 (Version 1)
Quarter: 2023Q2

REPORT INFORMATION
  Report Type: Spontaneous
  Country: CZ (occurrence: CZ)
  Receive Date: 20230523
  Receipt Date: 20230523
  Transmission Date: 20230721
  Serious: Yes (Other)
  Sender: FDA-Public Use
  Company Number: CZ-MYLANLABS-2019M1091793

PATIENT
  Age: 39 Year
  Sex: Male

DRUGS (6)
  1. GENTAMICIN [Suspect]
     Active Substance: GENTAMICIN
     Indication: Sepsis
     Dosage: UNK
     Route: 065
     Dates: start: 20181101
  2. PIPERACILLIN SODIUM\TAZOBACTAM SODIUM [Suspect]
     Active Substance: PIPERACILLIN SODIUM\TAZOBACTAM SODIUM
     Indication: Sepsis
     Dosage: UNK
     Route: 065
     Dates: start: 20181109
  3. METRONIDAZOLE [Suspect]
     Active Substance: METRONIDAZOLE
     Indication: Sepsis
     Dosage: UNK
     Route: 065
     Dates: start: 20181109
  4. TIGECYCLINE [Suspect]
     Active Substance: TIGECYCLINE
     Indication: Sepsis
     Dosage: UNK
     Route: 065
     Dates: start: 20181112
  5. CIPROFLOXACIN [Suspect]
     Active Substance: CIPROFLOXACIN
     Indication: Sepsis
     Dosage: UNK
     Route: 065
     Dates: start: 20181109
  6. PENICILLIN G [Suspect]
     Active Substance: PENICILLIN G
     Indication: Multiple injuries
     Dosage: UNK
     Route: 065
     Dates: start: 20181101

REACTIONS (1)
  - Sepsis [Not Recovered/Not Resolved]
